FAERS Safety Report 17004959 (Version 2)
Quarter: 2019Q4

REPORT INFORMATION
  Report Type: Spontaneous
  Country: US (occurrence: US)
  Receive Date: 20191107
  Receipt Date: 20191108
  Transmission Date: 20200122
  Serious: Yes (Other)
  Sender: FDA-Public Use
  Company Number: US-PFIZER INC-2019471262

PATIENT
  Age: 58 Year
  Sex: Male

DRUGS (11)
  1. TRIMETHOPRIM SULFAMETHOXAZOLE [Concomitant]
     Active Substance: SULFAMETHOXAZOLE\TRIMETHOPRIM
     Indication: PROPHYLAXIS
     Dosage: UNK, EVERY 3 WEEKS, UNK( REPEATED EVERY 21 DAYS FOR A USUAL TOTAL OF FOUR CYCLES)
  2. CYTARABINE. [Suspect]
     Active Substance: CYTARABINE
     Indication: DIFFUSE LARGE B-CELL LYMPHOMA STAGE IV
     Dosage: CYCLIC (DAYS 3 AND 4 REPEATED EVERY 21 DAYS FOR A USUAL TOTAL OF FOUR CYCLES)
  3. THIOTEPA. [Suspect]
     Active Substance: THIOTEPA
     Indication: DIFFUSE LARGE B-CELL LYMPHOMA STAGE IV
     Dosage: UNK, CYCLIC (DAY 5 REPEATED EVERY 21 DAYS FOR A USUAL TOTAL OF FOUR CYCLES)
  4. RITUXIMAB. [Suspect]
     Active Substance: RITUXIMAB
     Indication: DIFFUSE LARGE B-CELL LYMPHOMA STAGE IV
     Dosage: UNK, CYCLIC REPEATED EVERY 21 DAYS FOR A USUAL TOTAL OF FOUR CYCLES
  5. METHOTREXATE SODIUM. [Suspect]
     Active Substance: METHOTREXATE SODIUM
     Indication: DIFFUSE LARGE B-CELL LYMPHOMA STAGE IV
     Dosage: UNK, CYCLIC HIGH-DOSE (DAY 2 REPEATED EVERY 21 DAYS FOR A USUAL TOTAL OF FOUR CYCLES)
  6. METHOTREXATE SODIUM. [Suspect]
     Active Substance: METHOTREXATE SODIUM
     Indication: RHEUMATOID ARTHRITIS
  7. DEXAMETHASONE. [Concomitant]
     Active Substance: DEXAMETHASONE
     Indication: DIFFUSE LARGE B-CELL LYMPHOMA STAGE IV
     Dosage: UNK
  8. ACICLOVIR [Concomitant]
     Active Substance: ACYCLOVIR
     Indication: PROPHYLAXIS
     Dosage: UNK, EVERY 3 WEEKS, UNK( REPEATED EVERY 21 DAYS FOR A USUAL TOTAL OF FOUR CYCLES)
  9. PREDNISONE. [Concomitant]
     Active Substance: PREDNISONE
     Indication: RHEUMATOID ARTHRITIS
     Dosage: 10 MG, ALTERNATE DAY
  10. LISINOPRIL. [Concomitant]
     Active Substance: LISINOPRIL
     Dosage: UNK
  11. LEUCOVORINE [Suspect]
     Active Substance: LEUCOVORIN
     Indication: DIFFUSE LARGE B-CELL LYMPHOMA STAGE IV
     Dosage: UNK, CYCLIC (DAYS 3 AND 4 REPEATED EVERY 21 DAYS FOR A USUAL TOTAL OF FOUR CYCLES )

REACTIONS (1)
  - Pancytopenia [Unknown]
